FAERS Safety Report 25532981 (Version 4)
Quarter: 2025Q4

REPORT INFORMATION
  Report Type: Spontaneous
  Country: JP (occurrence: JP)
  Receive Date: 20250709
  Receipt Date: 20251201
  Transmission Date: 20260118
  Serious: Yes (Hospitalization, Other)
  Sender: AMGEN
  Company Number: JP-BEH-2025211652

PATIENT
  Age: 45 Year
  Sex: Female
  Weight: 56.7 kg

DRUGS (8)
  1. TAVNEOS [Suspect]
     Active Substance: AVACOPAN
     Indication: Microscopic polyangiitis
     Dosage: 30 MG, BID
     Route: 048
     Dates: start: 20250404, end: 20250507
  2. RITUXIMAB [Concomitant]
     Active Substance: RITUXIMAB
     Indication: Microscopic polyangiitis
     Dosage: 500 MG, QD
     Route: 040
     Dates: start: 20250408, end: 20250408
  3. RITUXIMAB [Concomitant]
     Active Substance: RITUXIMAB
     Dosage: 500 MG, QD
     Route: 040
     Dates: start: 20250415, end: 20250415
  4. LEVOTHYROXINE SODIUM [Concomitant]
     Active Substance: LEVOTHYROXINE SODIUM
     Dosage: 75 MICROGRAM, QD
     Route: 048
     Dates: start: 2008
  5. HALOPERIDOL [Concomitant]
     Active Substance: HALOPERIDOL
     Dosage: 5 MILLIGRAM, QD
     Route: 048
  6. SENNA [Concomitant]
     Active Substance: SENNOSIDES
     Dosage: 80 MG, QD
     Route: 065
     Dates: start: 20250405
  7. SULPIRIDE [Concomitant]
     Active Substance: SULPIRIDE
     Dosage: 200 MG, QD
     Route: 048
  8. MAGNESIUM OXIDE [Concomitant]
     Active Substance: MAGNESIUM OXIDE
     Dosage: 330 MG, TID (8 HOURS)
     Route: 065
     Dates: start: 2008

REACTIONS (4)
  - Drug-induced liver injury [Not Recovered/Not Resolved]
  - Hypokalaemia [Unknown]
  - Hepatic enzyme increased [Not Recovered/Not Resolved]
  - Blood bilirubin increased [Not Recovered/Not Resolved]

NARRATIVE: CASE EVENT DATE: 20250101
